FAERS Safety Report 18889045 (Version 3)
Quarter: 2021Q3

REPORT INFORMATION
  Report Type: Spontaneous
  Country: US (occurrence: US)
  Receive Date: 20210213
  Receipt Date: 20210924
  Transmission Date: 20211014
  Serious: No
  Sender: FDA-Public Use
  Company Number: US-SA-2021SA040014

PATIENT
  Age: 66 Year
  Sex: Female

DRUGS (1)
  1. AUBAGIO [Suspect]
     Active Substance: TERIFLUNOMIDE
     Indication: MULTIPLE SCLEROSIS
     Dosage: 7 MG, QD
     Route: 048
     Dates: start: 20201123

REACTIONS (7)
  - Balance disorder [Unknown]
  - Pruritus [Unknown]
  - Condition aggravated [Unknown]
  - Cognitive disorder [Unknown]
  - Diarrhoea [Unknown]
  - Adverse drug reaction [Recovered/Resolved]
  - Drug hypersensitivity [Unknown]
